FAERS Safety Report 4731097-7 (Version None)
Quarter: 2005Q3

REPORT INFORMATION
  Report Type: 
  Country: None (occurrence: None)
  Receive Date: 20050728
  Receipt Date: 20050415
  Transmission Date: 20060218
  Serious: No
  Sender: FDA-Public Use
  Company Number: ZICO001204

PATIENT
  Age: 72 Year
  Sex: Female
  Weight: 53.0709 kg

DRUGS (5)
  1. PRIALT [Suspect]
     Indication: BACK PAIN
     Dosage: 2.69 MCG/DAY INTRATHECAL
     Route: 037
     Dates: start: 20040817
  2. FOSAMAX (ALENDRONIC ACID) [Concomitant]
  3. PREMARIN [Concomitant]
  4. CALCIUM GLUCONATE [Concomitant]
  5. VICODIN [Concomitant]

REACTIONS (3)
  - DRY SKIN [None]
  - NAIL DISORDER [None]
  - PAIN [None]
